FAERS Safety Report 26093589 (Version 1)
Quarter: 2025Q4

REPORT INFORMATION
  Report Type: Spontaneous
  Country: US (occurrence: US)
  Receive Date: 20251126
  Receipt Date: 20251126
  Transmission Date: 20260117
  Serious: No
  Sender: MYLAN
  Company Number: US-MYLANLABS-2025M1098877

PATIENT

DRUGS (1)
  1. LISDEXAMFETAMINE DIMESYLATE [Suspect]
     Active Substance: LISDEXAMFETAMINE DIMESYLATE
     Indication: Binge eating
     Dosage: UNK

REACTIONS (5)
  - Disturbance in attention [Unknown]
  - Apathy [Unknown]
  - Migraine [Unknown]
  - Product substitution issue [Unknown]
  - Therapeutic response decreased [Unknown]
